FAERS Safety Report 8505433-X (Version None)
Quarter: 2012Q2

REPORT INFORMATION
  Report Type: 
  Country: None (occurrence: None)
  Receive Date: 20120405
  Receipt Date: 20090719
  Transmission Date: 20120825
  Serious: Yes (Other)
  Sender: FDA-Public Use
  Company Number: PHEH2009US07813

PATIENT

DRUGS (1)
  1. RECLAST [Suspect]

REACTIONS (1)
  - OSTEOPOROSIS [None]
